FAERS Safety Report 14692003 (Version 2)
Quarter: 2019Q4

REPORT INFORMATION
  Report Type: Report from Study
  Country: US (occurrence: US)
  Receive Date: 20180329
  Receipt Date: 20191029
  Transmission Date: 20200122
  Serious: Yes (Other)
  Sender: FDA-Public Use
  Company Number: PHHY2017US140309

PATIENT
  Age: 67 Year
  Sex: Female

DRUGS (1)
  1. GILENYA [Suspect]
     Active Substance: FINGOLIMOD HYDROCHLORIDE
     Indication: MULTIPLE SCLEROSIS
     Dosage: UNK, QD
     Route: 048

REACTIONS (4)
  - Iritis [Unknown]
  - Macular oedema [Unknown]
  - Alanine aminotransferase increased [Unknown]
  - Transaminases increased [Unknown]

NARRATIVE: CASE EVENT DATE: 20170713
